FAERS Safety Report 4390429-2 (Version None)
Quarter: 2004Q2

REPORT INFORMATION
  Report Type: 
  Country: None (occurrence: None)
  Receive Date: 20040628
  Receipt Date: 20040616
  Transmission Date: 20050107
  Serious: Yes (Hospitalization)
  Sender: FDA-Public Use
  Company Number: 2004041656

PATIENT
  Age: 64 Year
  Sex: Male

DRUGS (10)
  1. TAHOR (ATORVASTATIN) [Suspect]
     Indication: CARDIOVASCULAR DISORDER
     Dosage: 10 MG (1 IN 1 D), ORAL
     Route: 048
     Dates: start: 20040421, end: 20040426
  2. PREDNISOLONE [Concomitant]
  3. LORAZEPAM [Concomitant]
  4. AMLODIPINE [Concomitant]
  5. HYDROQUINIDINE [Concomitant]
  6. HEXAQUINE (NIAOULI OIL, QUININE BENZOATE, THIAMINE HYDROCHLORIDE) [Concomitant]
  7. SODIUM POLYSTYRENE SULFONATE [Concomitant]
  8. LANZOPRAZOLE [Concomitant]
  9. CALCIUM [Concomitant]
  10. BACTRIM [Concomitant]

REACTIONS (2)
  - PURPURA [None]
  - VASCULAR PURPURA [None]
